FAERS Safety Report 10948876 (Version 1)
Quarter: 2015Q1

REPORT INFORMATION
  Report Type: Spontaneous
  Country: US (occurrence: None)
  Receive Date: 20150323
  Receipt Date: 20150323
  Transmission Date: 20150721
  Serious: No
  Sender: FDA-Public Use
  Company Number: None

PATIENT
  Age: 38 Year
  Sex: Female
  Weight: 89.81 kg

DRUGS (3)
  1. BUPROPION SR 100 MG [Suspect]
     Active Substance: BUPROPION
     Indication: DEPRESSION
     Dosage: 2 PILLS ONCE DAILY
     Route: 048
     Dates: start: 20150206, end: 20150320
  2. METFORMIN [Concomitant]
     Active Substance: METFORMIN HYDROCHLORIDE
  3. SYNTHROID [Concomitant]
     Active Substance: LEVOTHYROXINE SODIUM

REACTIONS (2)
  - Product substitution issue [None]
  - Depression [None]

NARRATIVE: CASE EVENT DATE: 20150320
